FAERS Safety Report 5797524-1 (Version None)
Quarter: 2008Q3

REPORT INFORMATION
  Report Type: 
  Country: None (occurrence: None)
  Receive Date: 20080701
  Receipt Date: 20080701
  Transmission Date: 20090109
  Serious: Yes (Death, Life-Threatening, Hospitalization)
  Sender: FDA-Public Use
  Company Number: None

PATIENT
  Age: 71 Year
  Sex: Female
  Weight: 66.6788 kg

DRUGS (2)
  1. DIGITEK 0.25MG ACTAVIS TOTOWA [Suspect]
     Indication: CARDIAC FAILURE CONGESTIVE
     Dosage: 0.25MG 1 PER DAY
     Dates: start: 20040101, end: 20060416
  2. DIGITEK 0.25MG ACTAVIS TOTOWA [Suspect]
     Indication: TRICUSPID VALVE INCOMPETENCE
     Dosage: 0.25MG 1 PER DAY
     Dates: start: 20040101, end: 20060416

REACTIONS (11)
  - ANOREXIA [None]
  - BRADYCARDIA [None]
  - CARDIAC DISORDER [None]
  - CARDIAC FAILURE CONGESTIVE [None]
  - DIARRHOEA [None]
  - DYSGEUSIA [None]
  - HYPOTENSION [None]
  - OEDEMA PERIPHERAL [None]
  - PHOTOPSIA [None]
  - TRICUSPID VALVE INCOMPETENCE [None]
  - VISUAL IMPAIRMENT [None]
